FAERS Safety Report 4959601-4 (Version None)
Quarter: 2006Q1

REPORT INFORMATION
  Report Type: 
  Country: None (occurrence: None)
  Receive Date: 20060324
  Receipt Date: 20060308
  Transmission Date: 20060701
  Serious: Yes (Other)
  Sender: FDA-Public Use
  Company Number: 2006033624

PATIENT
  Age: 65 Year
  Sex: Female
  Weight: 58.514 kg

DRUGS (1)
  1. CLINDAMYCIN HYDROCHLORIDE [Suspect]
     Indication: TOOTH INFECTION
     Dosage: 1200 MG (300 MG, 4 IN 1 D)
     Dates: start: 20060213, end: 20060219

REACTIONS (5)
  - FREQUENT BOWEL MOVEMENTS [None]
  - LOCAL SWELLING [None]
  - RASH PRURITIC [None]
  - SWELLING FACE [None]
  - THROAT TIGHTNESS [None]
